FAERS Safety Report 19406242 (Version 1)
Quarter: 2021Q2

REPORT INFORMATION
  Report Type: Spontaneous
  Country: MA (occurrence: MA)
  Receive Date: 20210611
  Receipt Date: 20210611
  Transmission Date: 20210717
  Serious: Yes (Other)
  Sender: FDA-Public Use
  Company Number: MA-ZO SKIN HEALTH-2021ZOS00009

PATIENT
  Age: 27 Year
  Sex: Male

DRUGS (4)
  1. DAUNORUBICIN [Concomitant]
     Active Substance: DAUNORUBICIN
     Indication: ACUTE PROMYELOCYTIC LEUKAEMIA
     Dosage: 60 MG/M2, 1X/DAY
     Route: 042
  2. TRETINOIN. [Suspect]
     Active Substance: TRETINOIN
     Indication: ACUTE PROMYELOCYTIC LEUKAEMIA
     Dosage: 45 MG/M2/DAY, 2 DIVIDED DOSES
     Route: 048
  3. DAUNORUBICIN [Concomitant]
     Active Substance: DAUNORUBICIN
     Dosage: 45 MG/M2/DAY FOR THREE DAYS
     Route: 042
  4. TRETINOIN. [Suspect]
     Active Substance: TRETINOIN
     Dosage: 45 MG/M2, 1X/DAY FOR 15 DAYS EVERY 3 MONTHS
     Route: 048

REACTIONS (3)
  - Ejection fraction decreased [Recovered/Resolved]
  - Differentiation syndrome [Recovered/Resolved]
  - Myocarditis [Recovered/Resolved]
